FAERS Safety Report 4850834-4 (Version None)
Quarter: 2005Q4

REPORT INFORMATION
  Report Type: 
  Country: None (occurrence: None)
  Receive Date: 20051208
  Receipt Date: 20051125
  Transmission Date: 20060501
  Serious: Yes (Hospitalization)
  Sender: FDA-Public Use
  Company Number: 2200052N05FRA

PATIENT
  Age: 34 Year
  Sex: Female
  Weight: 49 kg

DRUGS (4)
  1. SAIZEN [Suspect]
     Indication: HYPOPITUITARISM
     Dosage: 0.84 MG, 1 IN 1 DAYS, SUBCUTANEOUS
     Route: 058
     Dates: start: 20040518, end: 20050526
  2. LEVOTHYROXINE SODIUM [Concomitant]
  3. HYDROCORTISONE/00028601/ [Concomitant]
  4. DESMOPRESSIN ACETATE [Concomitant]

REACTIONS (5)
  - CAESAREAN SECTION [None]
  - DRUG EXPOSURE DURING PREGNANCY [None]
  - HYPERTENSION [None]
  - PREGNANCY [None]
  - UTERINE ATONY [None]
